FAERS Safety Report 9531825 (Version 1)
Quarter: 2013Q3

REPORT INFORMATION
  Report Type: Spontaneous
  Country: US (occurrence: US)
  Receive Date: 20130918
  Receipt Date: 20130918
  Transmission Date: 20140515
  Serious: No
  Sender: FDA-Public Use
  Company Number: US-PFIZER INC-2013266323

PATIENT
  Sex: Female

DRUGS (1)
  1. CELEBREX [Suspect]
     Indication: NERVE COMPRESSION
     Dosage: UNK
     Dates: start: 201309, end: 201309

REACTIONS (4)
  - Off label use [Unknown]
  - Hypersensitivity [Recovered/Resolved]
  - Glossodynia [Recovered/Resolved]
  - Tongue coated [Recovered/Resolved]
